FAERS Safety Report 8540183-5 (Version None)
Quarter: 2012Q3

REPORT INFORMATION
  Report Type: 
  Country: None (occurrence: None)
  Receive Date: 20120726
  Receipt Date: 20120723
  Transmission Date: 20120928
  Serious: Yes (Other)
  Sender: FDA-Public Use
  Company Number: US-PFIZER INC-2012038080

PATIENT
  Sex: Female
  Weight: 3.7 kg

DRUGS (7)
  1. THYROID TAB [Concomitant]
     Dosage: 15 MG, 1X/DAY
     Route: 064
     Dates: start: 20060709
  2. MULTI-VITAMINS [Concomitant]
     Dosage: UNK
     Route: 064
     Dates: start: 20060709
  3. TYLENOL W/ CODEINE NO. 4 [Concomitant]
     Indication: BACK PAIN
     Dosage: DAILY
     Route: 064
     Dates: start: 20051213
  4. ZOLOFT [Suspect]
     Indication: ANXIETY
     Dosage: 50 MG, 1X/DAY
     Route: 064
  5. THYROID TAB [Concomitant]
     Dosage: UNK
     Route: 064
     Dates: start: 20051213
  6. ZOLOFT [Suspect]
     Dosage: 25 MG, 1X/DAY
     Route: 064
     Dates: start: 20060709
  7. THYROID TAB [Concomitant]
     Indication: HYPOTHYROIDISM
     Dosage: 30 UG, 1X/DAY
     Route: 064

REACTIONS (2)
  - FOETAL CARDIAC DISORDER [None]
  - MATERNAL EXPOSURE TIMING UNSPECIFIED [None]
